FAERS Safety Report 6741668-4 (Version None)
Quarter: 2010Q2

REPORT INFORMATION
  Report Type: 
  Country: None (occurrence: None)
  Receive Date: 20100526
  Receipt Date: 20100517
  Transmission Date: 20101027
  Serious: Yes (Life-Threatening, Hospitalization, Disabling)
  Sender: FDA-Public Use
  Company Number: RU-BAYER-201025669GPV

PATIENT
  Age: 43 Year
  Sex: Female

DRUGS (1)
  1. MIRENA [Suspect]
     Indication: UTERINE LEIOMYOMA
     Route: 015
     Dates: end: 20100317

REACTIONS (7)
  - ASCITES [None]
  - CHEST PAIN [None]
  - COUGH [None]
  - DYSPNOEA [None]
  - HYDROTHORAX [None]
  - METASTATIC NEOPLASM [None]
  - OVARIAN NEOPLASM [None]
